FAERS Safety Report 5861582-6 (Version None)
Quarter: 2008Q3

REPORT INFORMATION
  Report Type: 
  Country: None (occurrence: None)
  Receive Date: 20080827
  Receipt Date: 20080613
  Transmission Date: 20090109
  Serious: No
  Sender: FDA-Public Use
  Company Number: US-ABBOTT-08P-163-0457291-00

PATIENT
  Sex: Male
  Weight: 79.45 kg

DRUGS (4)
  1. NIASPAN [Suspect]
     Indication: BLOOD CHOLESTEROL INCREASED
     Route: 048
     Dates: start: 20080601
  2. NIASPAN [Suspect]
     Route: 048
     Dates: start: 20080501, end: 20080501
  3. PRAVASTATIN SODIUM [Concomitant]
     Indication: HYPERTENSION
     Route: 048
  4. OLMESARTAN MEDOXOMIL [Concomitant]
     Indication: BLOOD CHOLESTEROL INCREASED
     Route: 048

REACTIONS (1)
  - PRURITUS [None]
